FAERS Safety Report 8226819-7 (Version None)
Quarter: 2012Q1

REPORT INFORMATION
  Report Type: 
  Country: None (occurrence: None)
  Receive Date: 20120322
  Receipt Date: 20120319
  Transmission Date: 20120608
  Serious: No
  Sender: FDA-Public Use
  Company Number: US-BAYER-2012-027393

PATIENT
  Age: 55 Year
  Sex: Female
  Weight: 77.098 kg

DRUGS (10)
  1. FISH OIL [Concomitant]
  2. VESICARE [Concomitant]
     Dosage: UNK
  3. BETASERON [Suspect]
     Indication: MULTIPLE SCLEROSIS
     Dosage: UNK
  4. CYMBALTA [Concomitant]
  5. AMPYRA [Suspect]
     Indication: GAIT DISTURBANCE
     Dosage: 10 MG, Q12 HOURS
     Dates: start: 20110101
  6. LEVOTHYROXINE SODIUM [Concomitant]
     Dosage: UNK
  7. VITAMIN D [Concomitant]
     Dosage: UNK
  8. MULTI-VITAMIN [Concomitant]
     Dosage: UNK
  9. NALTREXONE [Concomitant]
  10. PROVIGIL [Concomitant]
     Dosage: UNK

REACTIONS (2)
  - GAIT DISTURBANCE [None]
  - INJECTION SITE ERYTHEMA [None]
